FAERS Safety Report 6534076-2 (Version None)
Quarter: 2010Q1

REPORT INFORMATION
  Report Type: 
  Country: None (occurrence: None)
  Receive Date: 20100112
  Receipt Date: 20100104
  Transmission Date: 20100710
  Serious: Yes (Other)
  Sender: FDA-Public Use
  Company Number: PHHY2009DE11797

PATIENT
  Sex: Female

DRUGS (2)
  1. FEMARA [Suspect]
     Indication: BREAST CANCER
     Dosage: 2.5 MG/DAY
     Route: 048
     Dates: start: 20060918, end: 20090509
  2. CHEMOTHERAPEUTICS NOS [Suspect]
     Indication: BREAST CANCER
     Dosage: UNK
     Dates: start: 20060921

REACTIONS (6)
  - ASTHENIA [None]
  - BALANCE DISORDER [None]
  - BLOOD CHOLESTEROL INCREASED [None]
  - FALL [None]
  - GAIT DISTURBANCE [None]
  - POLYNEUROPATHY [None]
